FAERS Safety Report 16310830 (Version 1)
Quarter: 2019Q2

REPORT INFORMATION
  Report Type: Spontaneous
  Country: IT (occurrence: IT)
  Receive Date: 20190514
  Receipt Date: 20190514
  Transmission Date: 20190711
  Serious: Yes (Hospitalization, Other)
  Sender: FDA-Public Use
  Company Number: IT-OTSUKA-2019_018455

PATIENT
  Age: 40 Year
  Sex: Male

DRUGS (3)
  1. JINARC [Suspect]
     Active Substance: TOLVAPTAN
     Dosage: UNK
     Route: 065
  2. JINARC [Suspect]
     Active Substance: TOLVAPTAN
     Indication: PRODUCT USED FOR UNKNOWN INDICATION
     Dosage: 90 MG, UNK
     Route: 065
  3. JINARC [Suspect]
     Active Substance: TOLVAPTAN
     Dosage: 30 MG, UNK
     Route: 065

REACTIONS (1)
  - Myocardial infarction [Recovered/Resolved]

NARRATIVE: CASE EVENT DATE: 20190419
